FAERS Safety Report 9063115 (Version 1)
Quarter: 2013Q1

REPORT INFORMATION
  Report Type: Spontaneous
  Country: US (occurrence: US)
  Receive Date: 20130131
  Receipt Date: 20130131
  Transmission Date: 20140127
  Serious: Yes (Hospitalization)
  Sender: FDA-Public Use
  Company Number: US-ABBOTT-12P-163-1008221-00

PATIENT
  Sex: Male

DRUGS (4)
  1. HUMIRA [Suspect]
     Indication: IRRITABLE BOWEL SYNDROME
  2. HUMIRA [Suspect]
  3. UNKNOWN MEDICATIONS [Suspect]
     Indication: IRRITABLE BOWEL SYNDROME
  4. AZATHIOPRINE [Concomitant]
     Indication: IRRITABLE BOWEL SYNDROME

REACTIONS (2)
  - Pancreatitis [Recovered/Resolved]
  - Irritable bowel syndrome [Unknown]
